FAERS Safety Report 7204011-2 (Version None)
Quarter: 2010Q4

REPORT INFORMATION
  Report Type: 
  Country: None (occurrence: None)
  Receive Date: 20101230
  Receipt Date: 20101215
  Transmission Date: 20110411
  Serious: Yes (Other)
  Sender: FDA-Public Use
  Company Number: PHHY2010IN85446

PATIENT
  Age: 70 Year
  Sex: Male

DRUGS (2)
  1. TIMOLOL MALEATE [Suspect]
     Route: 047
  2. DORZOLAMIDE [Suspect]
     Indication: GLAUCOMA
     Dosage: UNK
     Route: 061

REACTIONS (2)
  - CHOROIDAL DETACHMENT [None]
  - HYPOTONY OF EYE [None]
